FAERS Safety Report 23883711 (Version 1)
Quarter: 2024Q2

REPORT INFORMATION
  Report Type: Report from Study
  Country: JP (occurrence: JP)
  Receive Date: 20240522
  Receipt Date: 20240522
  Transmission Date: 20240716
  Serious: Yes (Other)
  Sender: FDA-Public Use
  Company Number: JP-UCBSA-2024025344

PATIENT

DRUGS (3)
  1. LEVETIRACETAM [Suspect]
     Active Substance: LEVETIRACETAM
     Indication: Seizure prophylaxis
     Dosage: INITIATED 1000 MILLIGRAM PER DAY, THE DOSE WAS INCREASED BY 1,000 MG/DAY UNTIL RESOLUTION OF EPILEPT
  2. LEVETIRACETAM [Suspect]
     Active Substance: LEVETIRACETAM
     Indication: Seizure
  3. LEVETIRACETAM [Suspect]
     Active Substance: LEVETIRACETAM
     Indication: Off label use

REACTIONS (4)
  - Partial seizures [Unknown]
  - Drug eruption [Unknown]
  - Off label use [Unknown]
  - Drug ineffective for unapproved indication [Unknown]
